FAERS Safety Report 21712530 (Version 1)
Quarter: 2022Q4

REPORT INFORMATION
  Report Type: Report from Study
  Country: CA (occurrence: CA)
  Receive Date: 20221212
  Receipt Date: 20221212
  Transmission Date: 20230113
  Serious: Yes (Other)
  Sender: FDA-Public Use
  Company Number: CA-MYLANLABS-2022M1136261

PATIENT
  Sex: Female
  Weight: 84 kg

DRUGS (1)
  1. CELEBREX [Suspect]
     Active Substance: CELECOXIB
     Indication: Ankylosing spondylitis
     Dosage: 200 MILLIGRAM, BID
     Route: 065
     Dates: end: 20200417

REACTIONS (2)
  - Cerebrovascular accident [Unknown]
  - Central nervous system lesion [Unknown]
